FAERS Safety Report 4269207-0 (Version None)
Quarter: 2004Q1

REPORT INFORMATION
  Report Type: 
  Country: None (occurrence: None)
  Receive Date: 20040113
  Receipt Date: 20040106
  Transmission Date: 20041129
  Serious: Yes (Hospitalization)
  Sender: FDA-Public Use
  Company Number: TW-GLAXOSMITHKLINE-B0318924A

PATIENT
  Age: 55 Year
  Sex: Female

DRUGS (1)
  1. SERETIDE [Suspect]
     Indication: ASTHMA
     Dosage: 2PUFF PER DAY
     Route: 055
     Dates: start: 20021105

REACTIONS (5)
  - ASTHMA [None]
  - DYSPNOEA [None]
  - DYSPNOEA EXERTIONAL [None]
  - INFECTION [None]
  - PSORIASIS [None]
